FAERS Safety Report 8353515-8 (Version None)
Quarter: 2012Q2

REPORT INFORMATION
  Report Type: 
  Country: None (occurrence: None)
  Receive Date: 20120511
  Receipt Date: 20110506
  Transmission Date: 20120825
  Serious: No
  Sender: FDA-Public Use
  Company Number: US-GLAXOSMITHKLINE-A0926399A

PATIENT
  Age: 33 Year
  Sex: Female

DRUGS (2)
  1. TYKERB [Suspect]
     Indication: BREAST CANCER
     Dosage: 1000MG PER DAY
     Route: 048
     Dates: start: 20101007
  2. NO CONCURRENT MEDICATION [Concomitant]

REACTIONS (2)
  - ONYCHOCLASIS [None]
  - DERMATITIS ACNEIFORM [None]
